FAERS Safety Report 9795806 (Version 13)
Quarter: 2016Q1

REPORT INFORMATION
  Report Type: Report from Study
  Country: IT (occurrence: IT)
  Receive Date: 20140103
  Receipt Date: 20160219
  Transmission Date: 20160526
  Serious: Yes (Hospitalization)
  Sender: FDA-Public Use
  Company Number: IT-ROCHE-1015695

PATIENT
  Age: 63 Year
  Sex: Female
  Weight: 50 kg

DRUGS (36)
  1. ACYCLOVIR. [Concomitant]
     Active Substance: ACYCLOVIR
     Indication: ANTIVIRAL PROPHYLAXIS
     Route: 065
     Dates: start: 20111118, end: 20120730
  2. METHOTREXATE [Concomitant]
     Active Substance: METHOTREXATE
     Route: 037
     Dates: start: 20120123, end: 20120123
  3. PARACETAMOL [Concomitant]
     Active Substance: ACETAMINOPHEN
     Indication: PREMEDICATION
     Route: 065
     Dates: start: 20111122, end: 20111125
  4. CYCLOPHOSPHAMIDE. [Suspect]
     Active Substance: CYCLOPHOSPHAMIDE
     Indication: DIFFUSE LARGE B-CELL LYMPHOMA
     Dosage: LAST DOSE PRIOR TO THROMBOCYTOPENIA, INFUSION RELATED REACTION, PNEUMONITIS AND FEBRILE NEUTROPENIA
     Route: 042
     Dates: start: 20111114
  5. PREDNISOLONE. [Suspect]
     Active Substance: PREDNISOLONE
     Indication: DIFFUSE LARGE B-CELL LYMPHOMA
     Dosage: LAST DOSE PRIOR TO INFUSION RELATED REACTION: 14/NOV/2011 AT 100MG?LAST DOSE PRIOR TO THROMBOCYTOPEN
     Route: 048
     Dates: start: 20111114
  6. METHOTREXATE [Concomitant]
     Active Substance: METHOTREXATE
     Route: 065
     Dates: start: 20120305, end: 20120305
  7. RANITIDINE [Concomitant]
     Active Substance: RANITIDINE\RANITIDINE HYDROCHLORIDE
     Indication: NAUSEA
     Route: 065
     Dates: start: 20111121, end: 20111121
  8. RANITIDINE [Concomitant]
     Active Substance: RANITIDINE\RANITIDINE HYDROCHLORIDE
     Indication: ABDOMINAL PAIN UPPER
  9. PREGABALIN. [Concomitant]
     Active Substance: PREGABALIN
     Indication: POST HERPETIC NEURALGIA
     Route: 065
     Dates: start: 20111122, end: 20111205
  10. OBINUTUZUMAB [Suspect]
     Active Substance: OBINUTUZUMAB
     Indication: DIFFUSE LARGE B-CELL LYMPHOMA
     Dosage: LAST DOSE PRIOR TO THROMBOCYTOPENIA, INFUSION RELATED REACTION AND PNEUMONITIS 21/NOV/2011 VOLUME: 2
     Route: 042
     Dates: start: 20111114
  11. VINCRISTINE [Suspect]
     Active Substance: VINCRISTINE
     Indication: DIFFUSE LARGE B-CELL LYMPHOMA
     Dosage: LAST DOSE PRIOR TO THROMBOCYTOPENIA, INFUSION RELATED REACTION, PNEUMONITIS AND FEBRILE NEUTROPENIA
     Route: 040
     Dates: start: 20111114
  12. DEXAMETHASONE. [Concomitant]
     Active Substance: DEXAMETHASONE
     Route: 065
     Dates: start: 20120305, end: 20120307
  13. VELAMOX [Concomitant]
     Active Substance: AMOXICILLIN
     Indication: PROPHYLAXIS
     Route: 065
     Dates: start: 20111028, end: 20111106
  14. PARACETAMOL [Concomitant]
     Active Substance: ACETAMINOPHEN
     Indication: PYREXIA
     Route: 065
     Dates: start: 20111118, end: 20120426
  15. LAEVOLAC [Concomitant]
     Active Substance: LACTULOSE
     Indication: CONSTIPATION
     Route: 065
     Dates: start: 20111124, end: 20111127
  16. CLEXANE [Concomitant]
     Active Substance: ENOXAPARIN SODIUM
     Indication: THROMBOSIS PROPHYLAXIS
     Route: 065
     Dates: start: 20111124, end: 20120510
  17. PLASIL [Concomitant]
     Active Substance: METOCLOPRAMIDE HYDROCHLORIDE
     Indication: VOMITING
     Route: 065
     Dates: start: 20111122, end: 20111122
  18. DOXORUBICIN [Suspect]
     Active Substance: DOXORUBICIN
     Indication: DIFFUSE LARGE B-CELL LYMPHOMA
     Dosage: LAST DOSE PRIOR TO THROMBOCYTOPENIA, INFUSION RELATED REACTION, PNEUMONITIS AND FEBRILE NEUTROPENIA
     Route: 042
     Dates: start: 20111114
  19. LANSOPRAZOLE. [Concomitant]
     Active Substance: LANSOPRAZOLE
     Indication: GASTRITIS
     Route: 065
     Dates: start: 20111103, end: 20120910
  20. BACTRIM [Concomitant]
     Active Substance: SULFAMETHOXAZOLE\TRIMETHOPRIM
     Indication: INFECTION
  21. FLUCONAZOLE. [Concomitant]
     Active Substance: FLUCONAZOLE
     Route: 065
     Dates: start: 20120302, end: 20120306
  22. URBASON [Concomitant]
     Active Substance: METHYLPREDNISOLONE
     Indication: PREMEDICATION
     Route: 065
     Dates: start: 20111118, end: 20120426
  23. OMEPRAZOLE. [Concomitant]
     Active Substance: OMEPRAZOLE
     Indication: GASTRITIS
     Route: 065
     Dates: start: 20111122, end: 20111205
  24. PLASIL [Concomitant]
     Active Substance: METOCLOPRAMIDE HYDROCHLORIDE
     Indication: NAUSEA
     Route: 065
     Dates: start: 20111125, end: 20111125
  25. DEXAMETHASONE. [Concomitant]
     Active Substance: DEXAMETHASONE
     Indication: HEADACHE
     Route: 065
     Dates: start: 20120123, end: 20120125
  26. KLACID (ITALY) [Concomitant]
     Active Substance: CLARITHROMYCIN
     Indication: ANTIBIOTIC PROPHYLAXIS
     Route: 065
     Dates: start: 20111028, end: 20111106
  27. ZOFRAN [Concomitant]
     Active Substance: ONDANSETRON HYDROCHLORIDE
     Indication: NAUSEA
     Route: 065
     Dates: start: 20111121, end: 20111121
  28. TRIMETON (CHLORPHENIRAMINE MALEATE) [Concomitant]
     Indication: PREMEDICATION
     Route: 065
     Dates: start: 20111118, end: 20120426
  29. TAZOBACTAM/PIPERACILLIN [Concomitant]
     Active Substance: PIPERACILLIN SODIUM\TAZOBACTAM SODIUM
     Indication: PROPHYLAXIS
     Route: 065
     Dates: start: 20111122, end: 20111205
  30. BACTRIM [Concomitant]
     Active Substance: SULFAMETHOXAZOLE\TRIMETHOPRIM
     Indication: INFECTION PROPHYLAXIS
     Route: 065
     Dates: start: 20111108, end: 20120730
  31. FLUCONAZOLE. [Concomitant]
     Active Substance: FLUCONAZOLE
     Indication: MUCOSAL INFLAMMATION
     Route: 065
     Dates: start: 20111124, end: 20111215
  32. FLUCONAZOLE. [Concomitant]
     Active Substance: FLUCONAZOLE
     Route: 065
     Dates: start: 20120322, end: 20120326
  33. NICETILE [Concomitant]
     Active Substance: ACETYLCARNITINE HYDROCHLORIDE
     Indication: PROPHYLAXIS
     Dosage: INDICATION IS ANTI INFLAMMATION
     Route: 065
     Dates: start: 20111108, end: 20111112
  34. ZOFRAN [Concomitant]
     Active Substance: ONDANSETRON HYDROCHLORIDE
     Indication: ABDOMINAL PAIN UPPER
  35. ITRACONAZOLE. [Concomitant]
     Active Substance: ITRACONAZOLE
     Indication: CANDIDA INFECTION
     Route: 065
     Dates: start: 201212, end: 20121214
  36. ALLOPURINOL. [Concomitant]
     Active Substance: ALLOPURINOL
     Indication: PROPHYLAXIS
     Route: 065
     Dates: start: 20111108, end: 20111120

REACTIONS (4)
  - Hypertransaminasaemia [Recovering/Resolving]
  - Neutropenia [Recovered/Resolved]
  - Thrombocytopenia [Recovered/Resolved]
  - Infusion related reaction [Recovered/Resolved]

NARRATIVE: CASE EVENT DATE: 20111122
